FAERS Safety Report 7969658-4 (Version None)
Quarter: 2011Q4

REPORT INFORMATION
  Report Type: 
  Country: None (occurrence: None)
  Receive Date: 20111208
  Receipt Date: 20111129
  Transmission Date: 20120403
  Serious: Yes (Other)
  Sender: FDA-Public Use
  Company Number: 2010MA003812

PATIENT
  Age: 81 Year
  Sex: Female
  Weight: 78.9259 kg

DRUGS (24)
  1. ADVAIR DISKUS 100/50 [Concomitant]
  2. GABAPENTIN [Concomitant]
  3. NASACORT [Concomitant]
  4. ALPRAZOLAM [Concomitant]
  5. ASPIRIN [Concomitant]
  6. CALCIUM [Concomitant]
  7. CARTIA XT [Concomitant]
  8. CLONIDINE [Concomitant]
  9. WELLBUTRIN [Concomitant]
  10. PROAIR HFA [Concomitant]
  11. SIMVASTATIN [Concomitant]
  12. PYRIDOXINE HCL [Concomitant]
  13. METOCLOPRAMIDE [Suspect]
     Indication: GASTROOESOPHAGEAL REFLUX DISEASE
     Dosage: 10 MG;BID;PO
     Route: 048
     Dates: start: 20060502, end: 20091118
  14. METOCLOPRAMIDE [Suspect]
     Indication: HIATUS HERNIA
     Dosage: 10 MG;BID;PO
     Route: 048
     Dates: start: 20060502, end: 20091118
  15. LORAZEPAM [Concomitant]
  16. BACLOFEN [Concomitant]
  17. VITAMIN E [Concomitant]
  18. BONIVA [Concomitant]
  19. DIOVAN [Concomitant]
  20. ZOLOFT [Concomitant]
  21. METOPROLOL TARTRATE [Concomitant]
  22. PANTOPRAZOLE [Concomitant]
  23. TERBINAFINE HCL [Concomitant]
  24. KEPPRA [Concomitant]

REACTIONS (23)
  - NEUROPATHY PERIPHERAL [None]
  - DIABETIC NEUROPATHY [None]
  - TREATMENT NONCOMPLIANCE [None]
  - TREMOR [None]
  - SOMNOLENCE [None]
  - HYPOREFLEXIA [None]
  - TANDEM GAIT TEST ABNORMAL [None]
  - EMOTIONAL DISTRESS [None]
  - ECONOMIC PROBLEM [None]
  - GAIT DISTURBANCE [None]
  - TARDIVE DYSKINESIA [None]
  - DYSKINESIA [None]
  - HYPOAESTHESIA [None]
  - DIABETES MELLITUS [None]
  - JAW DISORDER [None]
  - BRUXISM [None]
  - LOOSE TOOTH [None]
  - ANAEMIA [None]
  - BODY TEMPERATURE DECREASED [None]
  - TOOTH INJURY [None]
  - SOCIAL PROBLEM [None]
  - EXTRAPYRAMIDAL DISORDER [None]
  - TONGUE DISORDER [None]
